FAERS Safety Report 9637512 (Version 1)
Quarter: 2013Q4

REPORT INFORMATION
  Report Type: Spontaneous
  Country: US (occurrence: None)
  Receive Date: 20131018
  Receipt Date: 20131018
  Transmission Date: 20140711
  Serious: Yes (Hospitalization, Other)
  Sender: FDA-Public Use
  Company Number: ACO_38988_2013

PATIENT
  Age: 68 Year
  Sex: Male

DRUGS (1)
  1. AMPYRA [Suspect]
     Indication: MULTIPLE SCLEROSIS

REACTIONS (9)
  - Fall [None]
  - Kidney infection [None]
  - Prostatomegaly [None]
  - Bladder hypertrophy [None]
  - Cystitis [None]
  - Blood urine present [None]
  - Cough [None]
  - Constipation [None]
  - Nasopharyngitis [None]
